FAERS Safety Report 8509414-1 (Version None)
Quarter: 2012Q3

REPORT INFORMATION
  Report Type: 
  Country: None (occurrence: None)
  Receive Date: 20120713
  Receipt Date: 20120704
  Transmission Date: 20120928
  Serious: Yes (Death, Hospitalization)
  Sender: FDA-Public Use
  Company Number: JP-ROCHE-1085184

PATIENT
  Age: 72 Year
  Sex: Male

DRUGS (3)
  1. OXALIPLATIN [Suspect]
     Indication: COLON CANCER RECURRENT
     Dosage: DOSAGE IS UNCERTAIN.
     Route: 041
     Dates: start: 20110801
  2. XELODA [Suspect]
     Indication: COLON CANCER RECURRENT
     Dosage: DOSAGE IS UNCERTAIN.
     Route: 048
     Dates: start: 20110801
  3. XELODA [Suspect]
     Indication: COLON CANCER
     Dosage: EIGHT COURSES
     Route: 048
     Dates: start: 20100101

REACTIONS (6)
  - RENAL FAILURE ACUTE [None]
  - THROMBOCYTOPENIA [None]
  - DIARRHOEA [None]
  - DISSEMINATED INTRAVASCULAR COAGULATION [None]
  - RHABDOMYOLYSIS [None]
  - HEPATIC FAILURE [None]
